FAERS Safety Report 5779567-7 (Version None)
Quarter: 2008Q2

REPORT INFORMATION
  Report Type: 
  Country: None (occurrence: None)
  Receive Date: 20080619
  Receipt Date: 20080609
  Transmission Date: 20081010
  Serious: Yes (Hospitalization, Other)
  Sender: FDA-Public Use
  Company Number: US-PFIZER INC-2008032940

PATIENT
  Sex: Female

DRUGS (2)
  1. CELEBREX [Suspect]
     Indication: PAIN MANAGEMENT
  2. CELEBREX [Suspect]
     Indication: ARTHRITIS

REACTIONS (6)
  - CEREBROVASCULAR DISORDER [None]
  - CHOLECYSTECTOMY [None]
  - FIBROMYALGIA [None]
  - GASTROOESOPHAGEAL REFLUX DISEASE [None]
  - INSOMNIA [None]
  - MYOCARDIAL INFARCTION [None]
